FAERS Safety Report 9528946 (Version 2)
Quarter: 2014Q2

REPORT INFORMATION
  Report Type: Spontaneous
  Country: US (occurrence: None)
  Receive Date: 20130401
  Receipt Date: 20140401
  Transmission Date: 20141212
  Serious: Yes (Other)
  Sender: FDA-Public Use
  Company Number: PHEH2012US025169

PATIENT
  Age: 88 Year
  Sex: Male

DRUGS (9)
  1. EXELON PATCH (RIVASTIGMINE) TRANS-THERAPEUTIC SYSTEM [Suspect]
     Route: 062
  2. GLYBURIDE (GLIBENCLAMIDE) [Concomitant]
  3. TAMSULOSIN (TAMSULOSIN) [Concomitant]
  4. NISOLDIPINE (NISOLDIPINE) [Concomitant]
  5. PLAVIX (CLOPIDOGREL BISULFATE) [Concomitant]
  6. SYNTHROID (LEVOTHYROXINE SODIUM) [Concomitant]
  7. SIMVASTATIN  (SIMVASTATIN) [Concomitant]
  8. COZAAR (LOSARTAN POTASSIUM) [Concomitant]
  9. VITAMIN C [Concomitant]

REACTIONS (7)
  - Delirium [None]
  - Localised infection [None]
  - Limb injury [None]
  - Abnormal behaviour [None]
  - Arthritis [None]
  - Irritability [None]
  - Somnolence [None]
